FAERS Safety Report 16582108 (Version 1)
Quarter: 2019Q3

REPORT INFORMATION
  Report Type: Spontaneous
  Country: RO (occurrence: RO)
  Receive Date: 20190717
  Receipt Date: 20190717
  Transmission Date: 20191004
  Serious: Yes (Hospitalization)
  Sender: FDA-Public Use
  Company Number: RO-AMGEN-ROUNI2019111684

PATIENT
  Age: 40 Year
  Sex: Female
  Weight: 73 kg

DRUGS (3)
  1. TRASTUZUMAB. [Suspect]
     Active Substance: TRASTUZUMAB
     Indication: BREAST CANCER METASTATIC
     Dosage: 1 (UNITS IN THE INTERVAL 21 DAYS), Q3WK
     Route: 042
     Dates: start: 2014
  2. ZOLADEX [Concomitant]
     Active Substance: GOSERELIN ACETATE
     Indication: BREAST CANCER
  3. ECANSYA [Concomitant]
     Indication: BREAST CANCER

REACTIONS (4)
  - Intentional product use issue [Unknown]
  - Drug ineffective [Unknown]
  - Off label use [Unknown]
  - Oestrogen receptor assay positive [Unknown]
